FAERS Safety Report 19818515 (Version 1)
Quarter: 2021Q3

REPORT INFORMATION
  Report Type: Spontaneous
  Country: CA (occurrence: CA)
  Receive Date: 20210911
  Receipt Date: 20210911
  Transmission Date: 20211014
  Serious: Yes (Life-Threatening)
  Sender: FDA-Public Use
  Company Number: CA-TEVA-2021-CA-1950882

PATIENT
  Age: 57 Year
  Sex: Male

DRUGS (3)
  1. RAMIPRIL. [Suspect]
     Active Substance: RAMIPRIL
     Dosage: 10 MILLIGRAM DAILY;
     Route: 065
  2. OXAZEPAM. [Concomitant]
     Active Substance: OXAZEPAM
  3. ROSUVASTATIN. [Concomitant]
     Active Substance: ROSUVASTATIN
     Route: 065

REACTIONS (3)
  - Swollen tongue [Recovered/Resolved]
  - Lip swelling [Recovered/Resolved]
  - Dysphagia [Recovered/Resolved]
